FAERS Safety Report 10527583 (Version 1)
Quarter: 2014Q4

REPORT INFORMATION
  Report Type: Spontaneous
  Country: US (occurrence: None)
  Receive Date: 20141017
  Receipt Date: 20141017
  Transmission Date: 20150528
  Serious: Yes (Hospitalization)
  Sender: FDA-Public Use
  Company Number: None

PATIENT
  Age: 73 Year
  Sex: Female
  Weight: 53.3 kg

DRUGS (11)
  1. OFATUMUMAB [Suspect]
     Active Substance: OFATUMUMAB
     Indication: CHRONIC LYMPHOCYTIC LEUKAEMIA
     Route: 042
     Dates: start: 20140325, end: 20140908
  2. ALEMTUZUMAB [Suspect]
     Active Substance: ALEMTUZUMAB
     Indication: CHRONIC LYMPHOCYTIC LEUKAEMIA
     Route: 058
     Dates: start: 20140728, end: 20140908
  3. ATOVAQUONE SUSPENSION [Concomitant]
  4. VALGANCICLOVIR [Concomitant]
     Active Substance: VALGANCICLOVIR
  5. FERROUS SULFATE [Concomitant]
     Active Substance: FERROUS SULFATE\FERROUS SULFATE, DRIED
  6. METOPROLOL TARTRATE. [Concomitant]
     Active Substance: METOPROLOL TARTRATE
  7. CETIRIZINE [Concomitant]
     Active Substance: CETIRIZINE HYDROCHLORIDE
  8. FLUOXETINE HCL [Concomitant]
     Active Substance: FLUOXETINE HYDROCHLORIDE
  9. DIPHENHYDRAMINE ORAL LIQUID [Concomitant]
     Active Substance: DIPHENHYDRAMINE HYDROCHLORIDE
  10. SARNA [Concomitant]
     Active Substance: CAMPHOR (NATURAL)\MENTHOL\PRAMOXINE HYDROCHLORIDE
  11. TRIAMCINOLONE ACETONIDE. [Concomitant]
     Active Substance: TRIAMCINOLONE ACETONIDE

REACTIONS (11)
  - Hypophagia [None]
  - Viral rash [None]
  - Rash morbilliform [None]
  - Blood bilirubin increased [None]
  - Nausea [None]
  - Febrile neutropenia [None]
  - Hypovolaemia [None]
  - Hyponatraemia [None]
  - Haemolysis [None]
  - Pyrexia [None]
  - Drug eruption [None]

NARRATIVE: CASE EVENT DATE: 20141008
